FAERS Safety Report 16620048 (Version 1)
Quarter: 2019Q3

REPORT INFORMATION
  Report Type: Spontaneous
  Country: US (occurrence: US)
  Receive Date: 20190723
  Receipt Date: 20190723
  Transmission Date: 20191004
  Serious: No
  Sender: FDA-Public Use
  Company Number: US-IGSA-SR10007207

PATIENT
  Age: 37 Year
  Sex: Female

DRUGS (1)
  1. GAMUNEX-C [Suspect]
     Active Substance: HUMAN IMMUNOGLOBULIN G
     Indication: DERMATOMYOSITIS
     Dosage: 50 G, Q.2WK.
     Route: 042

REACTIONS (2)
  - HTLV-2 test positive [None]
  - HTLV-1 test positive [Unknown]

NARRATIVE: CASE EVENT DATE: 20180807
